FAERS Safety Report 8020949-0 (Version None)
Quarter: 2011Q4

REPORT INFORMATION
  Report Type: 
  Country: None (occurrence: None)
  Receive Date: 20111229
  Receipt Date: 20111229
  Transmission Date: 20120403
  Serious: Yes (Hospitalization)
  Sender: FDA-Public Use
  Company Number: None

PATIENT
  Age: 63 Year
  Sex: Male
  Weight: 62.4 kg

DRUGS (2)
  1. DENOSUMAB [Suspect]
     Indication: PROSTATE CANCER METASTATIC
     Dosage: 120 MG SQ
     Route: 058
     Dates: start: 20110720, end: 20110831
  2. DENOSUMAB [Suspect]
     Indication: METASTASES TO BONE
     Dosage: 120 MG SQ
     Route: 058
     Dates: start: 20110720, end: 20110831

REACTIONS (3)
  - HYPOCALCAEMIA [None]
  - ANAEMIA [None]
  - RENAL FAILURE ACUTE [None]
